FAERS Safety Report 4901691-9 (Version None)
Quarter: 2006Q1

REPORT INFORMATION
  Report Type: 
  Country: None (occurrence: None)
  Receive Date: 20060206
  Receipt Date: 20051109
  Transmission Date: 20060701
  Serious: No
  Sender: FDA-Public Use
  Company Number: US-BRISTOL-MYERS SQUIBB COMPANY-13175096

PATIENT
  Age: 71 Year
  Sex: Female
  Weight: 174 kg

DRUGS (8)
  1. TAXOL [Suspect]
     Indication: OVARIAN CANCER
     Route: 042
     Dates: start: 20040204
  2. PRILOSEC [Concomitant]
  3. ATIVAN [Concomitant]
  4. SYNTHROID [Concomitant]
  5. COUMADIN [Concomitant]
  6. POTASSIUM CHLORIDE [Concomitant]
  7. LASIX [Concomitant]
  8. DECADRON PHOSPHATE [Concomitant]
     Indication: PREMEDICATION

REACTIONS (1)
  - CATHETER RELATED COMPLICATION [None]
